FAERS Safety Report 8963279 (Version 1)
Quarter: 2012Q4

REPORT INFORMATION
  Report Type: 
  Country: US (occurrence: US)
  Receive Date: 20121214
  Receipt Date: 20121214
  Transmission Date: 20130627
  Serious: No
  Sender: FDA-Public Use
  Company Number: US-PFIZER INC-2012315539

PATIENT
  Sex: Female

DRUGS (4)
  1. LYRICA [Suspect]
     Indication: NEUROPATHY
     Dosage: 225 mg, 2x/day
  2. LYRICA [Suspect]
     Indication: POLYNEUROPATHY
  3. LYRICA [Suspect]
     Indication: MYELOPATHY
  4. LYRICA [Suspect]
     Indication: FIBROMYALGIA

REACTIONS (2)
  - Drug effect decreased [Unknown]
  - Pain [Unknown]
